FAERS Safety Report 9237107 (Version 2)
Quarter: 2013Q2

REPORT INFORMATION
  Report Type: Report from Study
  Country: US (occurrence: US)
  Receive Date: 20130417
  Receipt Date: 20130509
  Transmission Date: 20140414
  Serious: Yes (Hospitalization, Other)
  Sender: FDA-Public Use
  Company Number: US-GLAXOSMITHKLINE-A1020070A

PATIENT
  Age: 56 Year
  Sex: Female
  Weight: 84.1 kg

DRUGS (1)
  1. LYMPHOSTAT-B [Suspect]
     Indication: SYSTEMIC LUPUS ERYTHEMATOSUS
     Dosage: 10MGK CYCLIC
     Route: 042
     Dates: start: 20040219, end: 20130225

REACTIONS (1)
  - Clear cell renal cell carcinoma [Recovered/Resolved]
